FAERS Safety Report 4431189-6 (Version None)
Quarter: 2004Q3

REPORT INFORMATION
  Report Type: 
  Country: None (occurrence: None)
  Receive Date: 20040824
  Receipt Date: 20021003
  Transmission Date: 20050211
  Serious: No
  Sender: FDA-Public Use
  Company Number: PHRM2002FR02461

PATIENT
  Age: 63 Year
  Sex: Male
  Weight: 84 kg

DRUGS (7)
  1. TEGRETOL [Suspect]
     Indication: BIPOLAR I DISORDER
     Dosage: 1600 MG/DAY
     Route: 048
     Dates: start: 19990801, end: 19991007
  2. TEGRETOL [Suspect]
     Dosage: 400 MG, BID
     Route: 048
     Dates: start: 19990711, end: 19990701
  3. ANAFRANIL [Concomitant]
     Dosage: 75 MG, QD
     Route: 048
  4. ATHYMIL [Concomitant]
     Dosage: 30 MG, QD
     Route: 048
  5. TEMESTA [Concomitant]
     Dosage: 10 MG PER DAY
     Route: 048
  6. VOLTAREN [Concomitant]
  7. GINKGOFORCE [Concomitant]

REACTIONS (3)
  - DIARRHOEA [None]
  - TYPE III IMMUNE COMPLEX MEDIATED REACTION [None]
  - WEIGHT DECREASED [None]
